FAERS Safety Report 5588216-2 (Version None)
Quarter: 2008Q1

REPORT INFORMATION
  Report Type: 
  Country: None (occurrence: None)
  Receive Date: 20080111
  Receipt Date: 20080110
  Transmission Date: 20080703
  Serious: Yes (Death)
  Sender: FDA-Public Use
  Company Number: US-ASTRAZENECA-2008AC00090

PATIENT
  Age: 50 Year
  Sex: Female

DRUGS (6)
  1. QUETIAPINE [Suspect]
     Route: 065
  2. ACETAMINOPHEN AND OXYCODONE HCL [Suspect]
     Route: 065
  3. DIAZEPAM [Suspect]
     Route: 065
  4. VENLAFAXINE HCL [Suspect]
     Route: 065
  5. IBUPROFEN [Suspect]
     Route: 065
  6. HYDROCHLOROTHIAZIDE [Suspect]
     Route: 065

REACTIONS (2)
  - CARDIO-RESPIRATORY ARREST [None]
  - DEATH [None]
